FAERS Safety Report 4461113-1 (Version None)
Quarter: 2004Q3

REPORT INFORMATION
  Report Type: 
  Country: None (occurrence: None)
  Receive Date: 20040923
  Receipt Date: 20040916
  Transmission Date: 20050211
  Serious: Yes (Life-Threatening, Hospitalization, Other)
  Sender: FDA-Public Use
  Company Number: HQWYE082224MAY04

PATIENT
  Age: 45 Year
  Sex: Female
  Weight: 79.3 kg

DRUGS (2)
  1. MYLOTARG [Suspect]
     Indication: ACUTE MYELOID LEUKAEMIA
     Dosage: 15 MG 1X PER 1 DAY, INTRAVENOUS
     Route: 042
     Dates: start: 20040424, end: 20040424
  2. CYTARABINE [Concomitant]

REACTIONS (21)
  - ASCITES [None]
  - ASPARTATE AMINOTRANSFERASE INCREASED [None]
  - BLOOD BILIRUBIN INCREASED [None]
  - CARDIAC FAILURE CONGESTIVE [None]
  - CHILLS [None]
  - CRYPTOGENIC ORGANIZING PNEUMONIA [None]
  - DIZZINESS [None]
  - FEBRILE NEUTROPENIA [None]
  - HEPATIC ENZYME INCREASED [None]
  - HEPATITIS VIRAL [None]
  - HYPOTENSION [None]
  - INFUSION RELATED REACTION [None]
  - POST PROCEDURAL BILE LEAK [None]
  - PULMONARY ALVEOLAR HAEMORRHAGE [None]
  - PYREXIA [None]
  - RESPIRATORY DISTRESS [None]
  - SEPSIS [None]
  - SINUSITIS [None]
  - THROMBOCYTOPENIA [None]
  - VENOOCCLUSIVE LIVER DISEASE [None]
  - WEIGHT INCREASED [None]
